FAERS Safety Report 4798072-8 (Version None)
Quarter: 2005Q4

REPORT INFORMATION
  Report Type: 
  Country: None (occurrence: None)
  Receive Date: 20051011
  Receipt Date: 20051011
  Transmission Date: 20060501
  Serious: Yes (Other)
  Sender: FDA-Public Use
  Company Number: None

PATIENT
  Age: 52 Year
  Sex: Female
  Weight: 63.5036 kg

DRUGS (3)
  1. CIMETIDINE [Suspect]
     Indication: DYSPEPSIA
     Dosage: 400MG ONCE OR TWICE A DAY
     Dates: start: 20051002, end: 20051006
  2. CIMETIDINE [Suspect]
     Indication: GASTROOESOPHAGEAL REFLUX DISEASE
     Dosage: 400MG ONCE OR TWICE A DAY
     Dates: start: 20051002, end: 20051006
  3. CIMETIDINE [Suspect]
     Indication: MENIERE'S DISEASE
     Dosage: 400MG ONCE OR TWICE A DAY
     Dates: start: 20051002, end: 20051006

REACTIONS (2)
  - DYSPEPSIA [None]
  - PAIN [None]
